FAERS Safety Report 7599100-7 (Version None)
Quarter: 2011Q3

REPORT INFORMATION
  Report Type: 
  Country: None (occurrence: None)
  Receive Date: 20110711
  Receipt Date: 20110621
  Transmission Date: 20111222
  Serious: Yes (Hospitalization, Other)
  Sender: FDA-Public Use
  Company Number: US-BAYER-200934318NA

PATIENT
  Sex: Male
  Weight: 100 kg

DRUGS (14)
  1. TRASYLOL [Suspect]
     Indication: CORONARY ARTERY BYPASS
     Dosage: 200CC LOADING DOSE FOLLOWED BY 50 ML / HOUR DRIP
     Route: 042
     Dates: start: 20050929, end: 20050929
  2. LOPRESSOR [Concomitant]
     Dosage: 50MG TWICE DAILY
     Route: 048
  3. CEFAZOLIN [Concomitant]
     Dosage: 2GM X 2 DOSES
     Route: 042
     Dates: start: 20050929
  4. ACETYLSALICYLIC ACID SRT [Concomitant]
  5. VANCOMYCIN [Concomitant]
     Indication: PYREXIA
     Dosage: UNK
     Dates: start: 20051027
  6. IMIPENEM [Concomitant]
     Dosage: UNK
     Dates: start: 20051027
  7. PLAVIX [Concomitant]
     Dosage: 75MG DAILY, LONG TERM
     Route: 048
     Dates: start: 20050927
  8. ZESTRIL [Concomitant]
     Dosage: 20MG DAILY, LONG TERM
     Route: 048
  9. LISINOPRIL [Concomitant]
  10. ZOCOR [Concomitant]
     Dosage: 40MG DAILY
     Route: 048
  11. HYDROCHLOROTHIAZIDE [Concomitant]
     Dosage: 25MG DAILY, LONG TERM
     Route: 048
  12. TRASYLOL [Suspect]
     Indication: TRANSMYOCARDIAL REVASCULARISATION
  13. HEPARIN [Concomitant]
     Dosage: 40KU
     Route: 042
  14. LIPITOR [Concomitant]

REACTIONS (12)
  - RENAL INJURY [None]
  - EMOTIONAL DISTRESS [None]
  - UNEVALUABLE EVENT [None]
  - NERVOUSNESS [None]
  - INJURY [None]
  - PAIN [None]
  - MULTI-ORGAN FAILURE [None]
  - FEAR [None]
  - RENAL FAILURE [None]
  - DEPRESSION [None]
  - ANHEDONIA [None]
  - ANXIETY [None]
